FAERS Safety Report 7646338-6 (Version None)
Quarter: 2011Q3

REPORT INFORMATION
  Report Type: 
  Country: None (occurrence: None)
  Receive Date: 20110725
  Receipt Date: 20110707
  Transmission Date: 20111222
  Serious: Yes (Other)
  Sender: FDA-Public Use
  Company Number: JHP201100346

PATIENT
  Age: 50 Year
  Sex: Male

DRUGS (11)
  1. NITROUS OXIDE W/ OXYGEN [Concomitant]
  2. CURARE ALKALOIDS [Concomitant]
  3. PROCAINAMIDE [Concomitant]
  4. DANTROLENE SODIUM [Suspect]
     Indication: HYPERTHERMIA MALIGNANT
     Dosage: 600 MG, TOTAL, INTRAVENOUS
     Route: 042
  5. FENTANYL [Concomitant]
  6. THIOPENTAL (THIOPENTAL SODIUM) [Concomitant]
  7. VECURONIUM BROMIDE [Concomitant]
  8. LASIX [Concomitant]
  9. SUCCINYLCHOLINE CHLORIDE [Concomitant]
  10. BICARBONATE (SODIUM BICARBONATE) [Concomitant]
  11. ISOFLURANE [Concomitant]

REACTIONS (1)
  - RESPIRATORY FAILURE [None]
